FAERS Safety Report 4579780-0 (Version None)
Quarter: 2005Q1

REPORT INFORMATION
  Report Type: 
  Country: None (occurrence: None)
  Receive Date: 20050208
  Receipt Date: 20050124
  Transmission Date: 20050727
  Serious: Yes (Other)
  Sender: FDA-Public Use
  Company Number: 601765

PATIENT
  Age: 17 Year
  Sex: Male

DRUGS (2)
  1. HEMOFIL [Suspect]
     Dosage: INTRAVENOUS
     Route: 042
     Dates: start: 19890301, end: 19890301
  2. KOATE [Suspect]
     Indication: FACTOR VIII DEFICIENCY
     Dates: start: 19890101, end: 19891201

REACTIONS (1)
  - HEPATITIS C VIRUS [None]
